FAERS Safety Report 9135542 (Version 3)
Quarter: 2015Q2

REPORT INFORMATION
  Report Type: Spontaneous
  Country: FR (occurrence: FR)
  Receive Date: 20130304
  Receipt Date: 20150415
  Transmission Date: 20150821
  Serious: Yes (Life-Threatening)
  Sender: FDA-Public Use
  Company Number: FR-ASTRAZENECA-2013SE13318

PATIENT
  Age: 81 Year
  Sex: Male

DRUGS (11)
  1. ATACAND [Suspect]
     Active Substance: CANDESARTAN CILEXETIL
     Route: 048
     Dates: start: 2011, end: 201211
  2. KARDEGIC [Concomitant]
     Active Substance: ASPIRIN LYSINE
  3. LONG LASTING CARDIOLOGICAL TREATMENTS [Concomitant]
     Dates: start: 2007
  4. AMIODARONE [Concomitant]
     Active Substance: AMIODARONE
  5. ATACAND [Suspect]
     Active Substance: CANDESARTAN CILEXETIL
     Route: 048
     Dates: start: 20121221, end: 201302
  6. LASILIX [Concomitant]
     Active Substance: FUROSEMIDE
  7. PULMICORT TURBUHALER [Concomitant]
     Active Substance: BUDESONIDE
  8. PLAVIX [Concomitant]
     Active Substance: CLOPIDOGREL BISULFATE
  9. TAHOR [Concomitant]
     Active Substance: ATORVASTATIN CALCIUM
  10. LEVOTHYROX [Concomitant]
     Active Substance: LEVOTHYROXINE
  11. NOVONORM [Concomitant]
     Active Substance: REPAGLINIDE

REACTIONS (1)
  - Laryngeal oedema [Recovered/Resolved with Sequelae]

NARRATIVE: CASE EVENT DATE: 2011
